FAERS Safety Report 5792227-1 (Version None)
Quarter: 2008Q2

REPORT INFORMATION
  Report Type: 
  Country: None (occurrence: None)
  Receive Date: 20080626
  Receipt Date: 20080215
  Transmission Date: 20081010
  Serious: No
  Sender: FDA-Public Use
  Company Number: US-ASTRAZENECA-2008UW03170

PATIENT
  Sex: Female

DRUGS (1)
  1. PULMICORT [Suspect]
     Route: 055
     Dates: end: 20070701

REACTIONS (1)
  - MUSCULOSKELETAL STIFFNESS [None]
